FAERS Safety Report 7673516-2 (Version None)
Quarter: 2011Q3

REPORT INFORMATION
  Report Type: 
  Country: None (occurrence: None)
  Receive Date: 20110810
  Receipt Date: 20110801
  Transmission Date: 20111222
  Serious: Yes (Hospitalization)
  Sender: FDA-Public Use
  Company Number: FR-PFIZER INC-2011181041

PATIENT
  Age: 12 Year
  Sex: Female

DRUGS (28)
  1. PANTOPRAZOLE [Suspect]
     Indication: PROPHYLAXIS AGAINST GASTROINTESTINAL ULCER
     Dosage: 40 MG, 2X/DAY
     Route: 042
     Dates: start: 20110508, end: 20110518
  2. ATARAX [Suspect]
     Indication: ANXIETY POSTOPERATIVE
     Dosage: 25 MG, 3X/DAY
     Route: 048
     Dates: start: 20110510, end: 20110516
  3. ATARAX [Suspect]
     Dosage: 50 MG, 2X/DAY
     Route: 048
     Dates: start: 20110521, end: 20110521
  4. ACETAMINOPHEN [Suspect]
     Indication: PAIN
     Dosage: 400 MG, UNK
     Route: 048
     Dates: start: 20110520, end: 20110520
  5. PRIMPERAN TAB [Suspect]
     Indication: PROPHYLAXIS OF NAUSEA AND VOMITING
     Dosage: 15 MG, UNK
     Route: 048
     Dates: start: 20110511, end: 20110523
  6. CHLORPROMAZINE HCL [Concomitant]
     Dosage: 25 MG, 4X/DAY
     Dates: start: 20110505, end: 20110511
  7. PARACETAMOL [Concomitant]
     Dosage: 400 MG, 4X/DAY IF NEEDED
     Dates: start: 20110505, end: 20110518
  8. FORLAX [Concomitant]
     Dosage: 1 DF, 2X/DAY
     Route: 048
  9. PRIMPERAN TAB [Concomitant]
     Dosage: 5 MG, 3X/DAY
  10. CHLORPROMAZINE HCL [Concomitant]
     Dosage: 25 MG, 3X/DAY
     Dates: start: 20110512, end: 20110513
  11. SPASFON [Concomitant]
     Dosage: 3 DF, UNK
     Dates: start: 20110505, end: 20110510
  12. KEFANDOL [Concomitant]
     Dosage: 300 MG, 3X/DAY
  13. OMEPRAZOLE [Suspect]
     Indication: PROPHYLAXIS AGAINST GASTROINTESTINAL ULCER
     Dosage: 40 MG, 2X/DAY
     Route: 048
     Dates: start: 20110519, end: 20110523
  14. ACETAMINOPHEN [Suspect]
     Indication: PYREXIA
     Dosage: 800 MG, UNK
     Route: 048
     Dates: start: 20110521, end: 20110521
  15. ATARAX [Suspect]
     Dosage: 25 MG, 1X/DAY
     Route: 048
     Dates: start: 20110522, end: 20110522
  16. OMEPRAZOLE [Suspect]
     Dosage: 10 MG, 1X/DAY
     Dates: start: 20110524, end: 20110524
  17. ACETAMINOPHEN [Suspect]
     Dosage: 1200 MG, UNK
     Route: 048
     Dates: start: 20110522, end: 20110523
  18. ATARAX [Suspect]
     Dosage: 50 MG, 2X/DAY
     Route: 048
     Dates: start: 20110517, end: 20110519
  19. MORPHINE [Concomitant]
     Dosage: UNK
     Route: 042
     Dates: start: 20110504, end: 20110506
  20. LOVENOX [Suspect]
     Indication: THROMBOSIS PROPHYLAXIS
     Dosage: 0.2 ML, UNK
     Route: 058
     Dates: start: 20110505, end: 20110523
  21. KETAMINE [Concomitant]
     Dosage: UNK
     Dates: start: 20110504, end: 20110508
  22. TRIMEBUTINE MALEATE [Concomitant]
     Dosage: 3 DF, UNK
     Dates: start: 20110505, end: 20110510
  23. VANCOMYCIN [Concomitant]
     Dosage: 300 MG, 3X/DAY
  24. GENTAMICIN [Concomitant]
     Dosage: 100 MG, UNK
  25. NALBUPHINE HYDROCHLORIDE [Concomitant]
     Indication: PAIN
     Dosage: UNK
     Route: 048
     Dates: start: 20110507, end: 20110515
  26. BEPANTHEN CREME [Concomitant]
     Dosage: 3 DF, UNK
     Dates: start: 20110505, end: 20110510
  27. TIORFAN [Concomitant]
     Dosage: 3 DF, 3X/DAY
     Route: 048
  28. PIPERACILLIN AND TAZOBACTAM [Concomitant]
     Dosage: 2 GM

REACTIONS (4)
  - HEPATITIS ACUTE [None]
  - JAUNDICE [None]
  - VOMITING [None]
  - OFF LABEL USE [None]
